FAERS Safety Report 8391698-4 (Version None)
Quarter: 2012Q2

REPORT INFORMATION
  Report Type: 
  Country: None (occurrence: None)
  Receive Date: 20120529
  Receipt Date: 20120522
  Transmission Date: 20120825
  Serious: Yes (Other)
  Sender: FDA-Public Use
  Company Number: PHHY2012BR045357

PATIENT
  Sex: Female

DRUGS (1)
  1. DIOVAN [Suspect]
     Dosage: 160 MG,

REACTIONS (5)
  - FEMUR FRACTURE [None]
  - ACCIDENT [None]
  - HIP FRACTURE [None]
  - LOWER LIMB FRACTURE [None]
  - FALL [None]
